FAERS Safety Report 6703658-7 (Version None)
Quarter: 2010Q2

REPORT INFORMATION
  Report Type: 
  Country: None (occurrence: None)
  Receive Date: 20100430
  Receipt Date: 20100428
  Transmission Date: 20101027
  Serious: Yes (Other)
  Sender: FDA-Public Use
  Company Number: US-BRISTOL-MYERS SQUIBB COMPANY-15074008

PATIENT
  Sex: Female

DRUGS (2)
  1. ORENCIA [Suspect]
  2. PLAVIX [Suspect]

REACTIONS (4)
  - BLINDNESS UNILATERAL [None]
  - NASAL CONGESTION [None]
  - PARAESTHESIA [None]
  - RASH [None]
